FAERS Safety Report 20150236 (Version 1)
Quarter: 2021Q4

REPORT INFORMATION
  Report Type: Report from Study
  Country: US (occurrence: US)
  Receive Date: 20211206
  Receipt Date: 20211206
  Transmission Date: 20220303
  Serious: Yes (Hospitalization, Other)
  Sender: FDA-Public Use
  Company Number: US-GILEAD-2021-0555253

PATIENT
  Age: 45 Year
  Sex: Female

DRUGS (4)
  1. AMBRISENTAN [Suspect]
     Active Substance: AMBRISENTAN
     Indication: Pulmonary arterial hypertension
     Dosage: 5 MG, QD
     Route: 065
     Dates: start: 20150122
  2. REMODULIN [Suspect]
     Active Substance: TREPROSTINIL
     Indication: Pulmonary arterial hypertension
     Dosage: 0.037 UG/KG, Q1MINUTE
     Route: 042
     Dates: start: 20150109
  3. REMODULIN [Suspect]
     Active Substance: TREPROSTINIL
     Dosage: 35 NG, QD
     Route: 065
     Dates: start: 20141211
  4. SILDENAFIL CITRATE [Suspect]
     Active Substance: SILDENAFIL CITRATE
     Indication: Pulmonary arterial hypertension
     Dosage: 20 MG, TID
     Route: 065
     Dates: start: 20150310

REACTIONS (3)
  - Device dislocation [Unknown]
  - Sepsis [Unknown]
  - Dyspnoea [Not Recovered/Not Resolved]

NARRATIVE: CASE EVENT DATE: 20211101
